FAERS Safety Report 6156182-7 (Version None)
Quarter: 2009Q2

REPORT INFORMATION
  Report Type: 
  Country: None (occurrence: None)
  Receive Date: 20090413
  Receipt Date: 20090413
  Transmission Date: 20091009
  Serious: Yes (Other)
  Sender: FDA-Public Use
  Company Number: None

PATIENT
  Sex: Female
  Weight: 68.0396 kg

DRUGS (1)
  1. MIRENA [Suspect]
     Indication: CONTRACEPTION
     Dosage: IUD INTRA-UTERINE
     Route: 015
     Dates: start: 20050730, end: 20070801

REACTIONS (14)
  - ABDOMINAL PAIN UPPER [None]
  - ABORTION SPONTANEOUS [None]
  - CRYING [None]
  - DRUG EXPOSURE DURING PREGNANCY [None]
  - FEELING ABNORMAL [None]
  - HAEMORRHAGE [None]
  - HORMONE LEVEL ABNORMAL [None]
  - MALAISE [None]
  - MUSCLE SPASMS [None]
  - PELVIC INFLAMMATORY DISEASE [None]
  - PELVIC PAIN [None]
  - PREGNANCY TEST FALSE POSITIVE [None]
  - STRESS [None]
  - WEIGHT DECREASED [None]
